FAERS Safety Report 6756932-2 (Version None)
Quarter: 2010Q2

REPORT INFORMATION
  Report Type: 
  Country: None (occurrence: None)
  Receive Date: 20100604
  Receipt Date: 20100507
  Transmission Date: 20101027
  Serious: Yes (Other)
  Sender: FDA-Public Use
  Company Number: JP-JNJCH-2010010923

PATIENT
  Sex: Male

DRUGS (4)
  1. ZYRTEC [Suspect]
     Indication: RHINITIS ALLERGIC
     Dosage: TEXT:3.75 MG, DRY SYRUP 1.25%
     Route: 048
     Dates: start: 20100210, end: 20100317
  2. ONON [Concomitant]
     Indication: RHINITIS ALLERGIC
     Dosage: TEXT:210 MG
     Route: 048
  3. MUCODYNE [Concomitant]
     Indication: SINUSITIS
     Dosage: TEXT:900 MG
     Route: 048
     Dates: start: 20100210, end: 20100317
  4. EBASTINE [Concomitant]
     Indication: DRUG USE FOR UNKNOWN INDICATION
     Dosage: TEXT:UNKNOWN
     Route: 065

REACTIONS (2)
  - CONVULSION [None]
  - TREMOR [None]
